FAERS Safety Report 8267033 (Version 3)
Quarter: 2013Q1

REPORT INFORMATION
  Report Type: Report from Study
  Country: JP (occurrence: JP)
  Receive Date: 20111129
  Receipt Date: 20130122
  Transmission Date: 20140127
  Serious: Yes (Life-Threatening, Hospitalization, Other)
  Sender: FDA-Public Use
  Company Number: JP-GENZYME-THYM-1002913

PATIENT
  Age: 1 Year
  Sex: Male
  Weight: 11 kg

DRUGS (20)
  1. THYMOGLOBULINE [Suspect]
     Indication: BONE MARROW CONDITIONING REGIMEN
     Dosage: 25 MG, QD
     Route: 042
     Dates: start: 20110221, end: 20110222
  2. FLUDARA [Suspect]
     Indication: HISTIOCYTOSIS HAEMATOPHAGIC
     Dosage: 14 MG/DAY, QD
     Route: 065
  3. HAPTOGLOBINS [Concomitant]
     Indication: PROPHYLAXIS
     Dosage: UNK
     Route: 065
     Dates: start: 20110223, end: 20110223
  4. TACROLIMUS [Concomitant]
     Indication: PROPHYLAXIS AGAINST GRAFT VERSUS HOST DISEASE
     Dosage: UNK
     Route: 065
     Dates: start: 20110222, end: 20110312
  5. TACROLIMUS [Concomitant]
     Dosage: UNK
     Dates: start: 20110312
  6. METHOTREXAT [Concomitant]
     Indication: PROPHYLAXIS AGAINST GRAFT VERSUS HOST DISEASE
     Dosage: UNK
     Route: 065
     Dates: start: 20110224, end: 20110301
  7. GLYCYRRHIZIN GLYCINE CYTEINE COMBINED DRUG [Concomitant]
     Indication: HEPATIC FUNCTION ABNORMAL
     Dosage: UNK
     Route: 065
  8. ETOPOSIDE [Concomitant]
     Indication: HISTIOCYTOSIS HAEMATOPHAGIC
     Dosage: UNK
     Route: 065
     Dates: start: 20110216, end: 20110217
  9. GRANISETRON [Concomitant]
     Indication: PROPHYLAXIS OF NAUSEA AND VOMITING
     Dosage: UNK
     Route: 065
     Dates: start: 20110216, end: 20110220
  10. MELPHALAN [Concomitant]
     Indication: HISTIOCYTOSIS HAEMATOPHAGIC
     Dosage: UNK
     Route: 065
     Dates: start: 20110219, end: 20110220
  11. IMMUNOGLOBULIN HUMAN NORMAL [Concomitant]
     Indication: ANTIVIRAL PROPHYLAXIS
     Dosage: UNK
     Route: 065
     Dates: end: 20110412
  12. HYDROXYZINE PAMOATE [Concomitant]
     Indication: PREMEDICATION
     Dosage: UNK
     Route: 065
     Dates: start: 20110221, end: 20110222
  13. PREDNISOLONE [Concomitant]
     Indication: PREMEDICATION
     Dosage: UNK
     Route: 065
     Dates: start: 20110221, end: 20110222
  14. PREDNISOLONE [Concomitant]
     Indication: HISTIOCYTOSIS HAEMATOPHAGIC
     Dosage: UNK
     Dates: start: 20110216, end: 20110220
  15. NORFLOXACINE [Concomitant]
     Indication: PROPHYLAXIS
     Dosage: UNK
     Route: 065
     Dates: start: 20110207, end: 20110302
  16. FLUCONAZOLE [Concomitant]
     Indication: ANTIFUNGAL PROPHYLAXIS
     Dosage: UNK
     Route: 065
     Dates: start: 20110209
  17. ACICLOVIR [Concomitant]
     Indication: ANTIVIRAL PROPHYLAXIS
     Dosage: UNK
     Route: 065
     Dates: start: 20110216, end: 20110325
  18. URSODEOXYCHOLIC ACID [Concomitant]
     Indication: PROPHYLAXIS
     Dosage: UNK
     Route: 065
     Dates: start: 20110216, end: 20110325
  19. SULFAMETHOPRIM [Concomitant]
     Indication: ANTIFUNGAL PROPHYLAXIS
     Dosage: UNK
     Route: 065
     Dates: start: 20110404
  20. EPINASTINE HYDROCHLORIDE [Concomitant]
     Indication: ECZEMA
     Dosage: UNK
     Route: 065
     Dates: start: 20110325

REACTIONS (4)
  - Acute graft versus host disease in skin [Recovered/Resolved]
  - Herpes zoster [Recovered/Resolved]
  - Infection [Recovered/Resolved]
  - Neutropenia [Recovered/Resolved]
